FAERS Safety Report 5466475-4 (Version None)
Quarter: 2007Q3

REPORT INFORMATION
  Report Type: 
  Country: None (occurrence: None)
  Receive Date: 20070820
  Receipt Date: 20070605
  Transmission Date: 20080115
  Serious: No
  Sender: FDA-Public Use
  Company Number: WAES 0706USA00948

PATIENT
  Age: 77 Year
  Sex: Male

DRUGS (2)
  1. JANUVIA [Suspect]
     Indication: TYPE 2 DIABETES MELLITUS
     Dosage: 100 MG/DAILY/PO
     Route: 048
  2. NORVASC [Concomitant]

REACTIONS (3)
  - BACK PAIN [None]
  - DIARRHOEA [None]
  - STOMACH DISCOMFORT [None]
